FAERS Safety Report 8236585-7 (Version None)
Quarter: 2012Q1

REPORT INFORMATION
  Report Type: 
  Country: None (occurrence: None)
  Receive Date: 20120326
  Receipt Date: 20120326
  Transmission Date: 20120608
  Serious: No
  Sender: FDA-Public Use
  Company Number: None

PATIENT
  Age: 77 Year
  Sex: Male
  Weight: 74.8435 kg

DRUGS (1)
  1. METOPROLOL SUCCINATE [Suspect]
     Dosage: 25 MG DAILY WATSON MFG

REACTIONS (2)
  - THERMAL BURN [None]
  - FLATULENCE [None]
